FAERS Safety Report 10430754 (Version 1)
Quarter: 2014Q3

REPORT INFORMATION
  Report Type: Spontaneous
  Country: US (occurrence: None)
  Receive Date: 20140903
  Receipt Date: 20140903
  Transmission Date: 20150326
  Serious: Yes (Other)
  Sender: FDA-Public Use
  Company Number: None

PATIENT
  Age: 87 Year
  Sex: Male

DRUGS (6)
  1. LISINOPRIL. [Concomitant]
     Active Substance: LISINOPRIL
  2. NADOLOL. [Concomitant]
     Active Substance: NADOLOL
  3. LIPOTRIAD TAB [Concomitant]
  4. ZYTIGA [Suspect]
     Active Substance: ABIRATERONE ACETATE
     Indication: PLASMA CELL MYELOMA
     Route: 048
     Dates: start: 20140529
  5. CITRACAL [Concomitant]
     Active Substance: CALCIUM CITRATE
  6. WARFARIN [Concomitant]
     Active Substance: WARFARIN

REACTIONS (2)
  - Fatigue [None]
  - Peripheral swelling [None]

NARRATIVE: CASE EVENT DATE: 20140825
